FAERS Safety Report 5519411-6 (Version None)
Quarter: 2007Q4

REPORT INFORMATION
  Report Type: 
  Country: None (occurrence: None)
  Receive Date: 20071116
  Receipt Date: 20071101
  Transmission Date: 20080405
  Serious: Yes (Hospitalization)
  Sender: FDA-Public Use
  Company Number: PL-ROCHE-529231

PATIENT
  Age: 71 Year
  Sex: Female

DRUGS (8)
  1. NAPROXEN [Suspect]
     Route: 065
     Dates: start: 20050801
  2. DIGOXIN [Interacting]
     Indication: CEREBROVASCULAR INSUFFICIENCY
     Route: 065
  3. LITHIUM CARBONATE [Interacting]
     Indication: BIPOLAR DISORDER
     Route: 065
  4. FUROSEMIDE [Interacting]
     Indication: CEREBROVASCULAR INSUFFICIENCY
     Route: 065
  5. CARBAMAZEPINE [Interacting]
     Indication: DRUG USE FOR UNKNOWN INDICATION
     Route: 065
  6. DICLOFENAC SODIUM [Concomitant]
     Dosage: AT NIGHT
     Dates: start: 20050801
  7. LEVOMEPROMAZINE [Concomitant]
  8. BIPERIDEN HYDROCHLORIDE TAB [Concomitant]
     Indication: PARKINSON'S DISEASE
     Dates: start: 20050801

REACTIONS (2)
  - DRUG INTERACTION [None]
  - THERAPEUTIC AGENT TOXICITY [None]
